FAERS Safety Report 11893080 (Version 2)
Quarter: 2016Q1

REPORT INFORMATION
  Report Type: Spontaneous
  Country: IT (occurrence: IT)
  Receive Date: 20160106
  Receipt Date: 20160121
  Transmission Date: 20160526
  Serious: Yes (Other)
  Sender: FDA-Public Use
  Company Number: IT-KADMON PHARMACEUTICALS, LLC-KAD201512-004716

PATIENT
  Age: 66 Year
  Sex: Female

DRUGS (10)
  1. METFORMINA CLORHIDRATO/GLIBOMET [Concomitant]
     Dosage: TABLET
     Route: 048
  2. IRBESARTAN AND HYDROCHLOROTHIAZIDE [Concomitant]
     Active Substance: HYDROCHLOROTHIAZIDE\IRBESARTAN
     Route: 048
  3. IRBESARTAN AND HYDROCHLOROTHIAZIDE [Concomitant]
     Active Substance: HYDROCHLOROTHIAZIDE\IRBESARTAN
  4. AMITRIPTYLINE HYDROCHLORIDE. [Concomitant]
     Active Substance: AMITRIPTYLINE HYDROCHLORIDE
  5. RIBAVIRIN. [Suspect]
     Active Substance: RIBAVIRIN
     Dosage: TABLET
     Route: 048
  6. SOFOSBUVIR [Suspect]
     Active Substance: SOFOSBUVIR
     Indication: CHRONIC HEPATITIS C
     Dosage: TABLET
     Route: 048
     Dates: start: 20151211
  7. CARBOLITHIUM [Concomitant]
     Active Substance: LITHIUM CARBONATE
  8. RIBAVIRIN. [Suspect]
     Active Substance: RIBAVIRIN
     Dosage: TABLET
     Route: 048
     Dates: start: 20151211
  9. METFORMIN HYDROCHLORIDE. [Concomitant]
     Active Substance: METFORMIN HYDROCHLORIDE
     Dosage: TABLET
  10. BISOPROLOL FUMARATE. [Concomitant]
     Active Substance: BISOPROLOL FUMARATE
     Dosage: TABLET
     Route: 048

REACTIONS (4)
  - Vitamin B12 decreased [Unknown]
  - Acute kidney injury [Unknown]
  - Anaemia [Unknown]
  - Metabolic acidosis [Unknown]

NARRATIVE: CASE EVENT DATE: 20151224
